FAERS Safety Report 16378141 (Version 2)
Quarter: 2019Q3

REPORT INFORMATION
  Report Type: Report from Study
  Country: CA (occurrence: CA)
  Receive Date: 20190531
  Receipt Date: 20190731
  Transmission Date: 20191004
  Serious: Yes (Other)
  Sender: FDA-Public Use
  Company Number: CA-JNJFOC-20190539957

PATIENT
  Age: 15 Year
  Sex: Male
  Weight: 70.2 kg

DRUGS (2)
  1. REMICADE [Suspect]
     Active Substance: INFLIXIMAB
     Indication: COLITIS
     Route: 042
     Dates: start: 20190419
  2. METHOTREXATE. [Concomitant]
     Active Substance: METHOTREXATE
     Route: 048

REACTIONS (3)
  - Frequent bowel movements [Recovering/Resolving]
  - Haematochezia [Not Recovered/Not Resolved]
  - Acne [Recovering/Resolving]

NARRATIVE: CASE EVENT DATE: 2019
